FAERS Safety Report 24329721 (Version 1)
Quarter: 2024Q3

REPORT INFORMATION
  Report Type: Spontaneous
  Country: US (occurrence: CA)
  Receive Date: 20240917
  Receipt Date: 20240917
  Transmission Date: 20241016
  Serious: No
  Sender: SANOFI AVENTIS
  Company Number: US-SA-2024SA266111

PATIENT
  Sex: Female

DRUGS (11)
  1. DUPIXENT [Suspect]
     Active Substance: DUPILUMAB
     Indication: Polyarthritis
     Dosage: UNK
  2. ASPIRIN [Concomitant]
     Active Substance: ASPIRIN
  3. MINERALS\VITAMINS [Concomitant]
     Active Substance: MINERALS\VITAMINS
     Dosage: UNK
  4. ESTROGEL [Concomitant]
     Active Substance: ESTRADIOL
     Dosage: UNK
  5. FISH OIL [Concomitant]
     Active Substance: FISH OIL
  6. FLUTICASONE [Concomitant]
     Active Substance: FLUTICASONE
  7. LEVOTHYROXINE [Concomitant]
     Active Substance: LEVOTHYROXINE\LEVOTHYROXINE SODIUM
  8. LISINOPRIL [Concomitant]
     Active Substance: LISINOPRIL
  9. VITAMINS [Concomitant]
     Active Substance: VITAMINS
  10. PREDNISONE [Concomitant]
     Active Substance: PREDNISONE
     Dosage: UNK
  11. SERTRALINE [Concomitant]
     Active Substance: SERTRALINE HYDROCHLORIDE

REACTIONS (5)
  - Urinary tract infection [Unknown]
  - Nasal congestion [Unknown]
  - Ear discomfort [Unknown]
  - Dizziness [Unknown]
  - Product use in unapproved indication [Unknown]
